FAERS Safety Report 19514894 (Version 1)
Quarter: 2021Q3

REPORT INFORMATION
  Report Type: Spontaneous
  Country: TR (occurrence: TR)
  Receive Date: 20210709
  Receipt Date: 20210709
  Transmission Date: 20211014
  Serious: Yes (Other)
  Sender: FDA-Public Use
  Company Number: NVSC2021TR150189

PATIENT
  Age: 36 Year
  Sex: Female

DRUGS (1)
  1. TEGRETOL [Suspect]
     Active Substance: CARBAMAZEPINE
     Indication: CEREBRAL DISORDER
     Dosage: 200 MG (160 TABLET)
     Route: 065

REACTIONS (2)
  - Condition aggravated [Unknown]
  - Product supply issue [Unknown]
